FAERS Safety Report 5354328-1 (Version None)
Quarter: 2007Q2

REPORT INFORMATION
  Report Type: 
  Country: None (occurrence: None)
  Receive Date: 20070612
  Receipt Date: 20070531
  Transmission Date: 20071010
  Serious: Yes (Hospitalization)
  Sender: FDA-Public Use
  Company Number: US-ASTRAZENECA-2006UW08353

PATIENT
  Age: 49 Year
  Sex: Male

DRUGS (2)
  1. SEROQUEL [Suspect]
     Indication: SLEEP DISORDER
     Route: 048
     Dates: start: 20040301, end: 20060101
  2. ZYPREXA/SYMBYAX (OLANZAPINE) [Concomitant]
     Dates: start: 20020601, end: 20040101

REACTIONS (2)
  - DIABETES MELLITUS [None]
  - PANCREATITIS [None]
